FAERS Safety Report 6261028-2 (Version None)
Quarter: 2009Q3

REPORT INFORMATION
  Report Type: 
  Country: None (occurrence: None)
  Receive Date: 20090709
  Receipt Date: 20090707
  Transmission Date: 20100115
  Serious: Yes (Hospitalization)
  Sender: FDA-Public Use
  Company Number: CA-BIOGENIDEC-2009BI013803

PATIENT
  Age: 43 Year
  Sex: Female

DRUGS (3)
  1. TYSABRI [Suspect]
     Indication: MULTIPLE SCLEROSIS
     Route: 042
     Dates: start: 20090409
  2. LYRICA [Concomitant]
  3. ELAVIL [Concomitant]
     Route: 048

REACTIONS (3)
  - COUGH [None]
  - DYSPNOEA [None]
  - MAMMOGRAM ABNORMAL [None]
